FAERS Safety Report 6515394-0 (Version None)
Quarter: 2009Q4

REPORT INFORMATION
  Report Type: 
  Country: None (occurrence: None)
  Receive Date: 20091223
  Receipt Date: 20091211
  Transmission Date: 20100525
  Serious: Yes (Disabling)
  Sender: FDA-Public Use
  Company Number: PHEH2009US15834

PATIENT
  Sex: Female
  Weight: 72.562 kg

DRUGS (17)
  1. RECLAST [Suspect]
     Indication: OSTEOPOROSIS
     Dosage: 5 MG, ONCE/SINGLE
     Dates: start: 20091009, end: 20091009
  2. MEDROL [Suspect]
     Dosage: 4 MG, AS DIRECTED
     Route: 048
  3. EXCEDRIN (MIGRAINE) [Concomitant]
     Dosage: 250-250-65, BID
     Route: 048
  4. SPIRIVA [Concomitant]
     Dosage: MDI, DAILY
  5. PREVACID [Concomitant]
     Dosage: 30 MG, QD
     Route: 048
  6. ZANTAC [Concomitant]
     Dosage: 150 MG, BID
     Route: 048
  7. LIPITOR [Concomitant]
     Dosage: 10 MG, QD
     Route: 048
  8. METOPROLOL TARTRATE [Concomitant]
     Dosage: 50 MG, QD
     Route: 048
  9. SYNTHROID [Concomitant]
     Dosage: 50 UG, QD
     Route: 048
  10. PRISTIQ [Concomitant]
     Dosage: 50 MG, QD
     Route: 048
  11. IMITREX ^CERENEX^ [Concomitant]
     Dosage: 25 MG, PRN
     Route: 048
  12. NITRO-DUR [Concomitant]
     Dosage: 0.4 MG/H, PRN
  13. CARAFATE [Concomitant]
     Dosage: 1 GM/ 10 ML, PRN
     Route: 048
  14. MIRALAX [Concomitant]
     Dosage: UNK, PRN
  15. NORVASC [Concomitant]
     Indication: BLOOD PRESSURE
     Dosage: 2.5 MG, QD
     Route: 048
  16. VASOTEC [Concomitant]
     Dosage: UNK, UNK
  17. EPIDURAL [Concomitant]
     Dosage: Q 4 MONTHS

REACTIONS (8)
  - EMOTIONAL DISTRESS [None]
  - HYPOAESTHESIA [None]
  - INJECTION SITE DISCOMFORT [None]
  - INJECTION SITE PAIN [None]
  - NAUSEA [None]
  - PARAESTHESIA [None]
  - PERIPHERAL COLDNESS [None]
  - SLEEP DISORDER [None]
